FAERS Safety Report 20355037 (Version 1)
Quarter: 2022Q1

REPORT INFORMATION
  Report Type: Spontaneous
  Country: US (occurrence: None)
  Receive Date: 20220119
  Receipt Date: 20220119
  Transmission Date: 20220424
  Serious: Yes (Hospitalization)
  Sender: FDA-Public Use
  Company Number: None

PATIENT
  Age: 51 Year
  Sex: Female

DRUGS (3)
  1. CASIRIVIMAB\IMDEVIMAB [Suspect]
     Active Substance: CASIRIVIMAB\IMDEVIMAB
     Indication: COVID-19
     Dosage: OTHER FREQUENCY : ONCE;?
     Route: 058
     Dates: start: 20220102, end: 20220102
  2. Aspirin 81 mg oral tablet [Concomitant]
  3. metoprolol succinate ER 50mg ora tablet. [Concomitant]

REACTIONS (3)
  - Condition aggravated [None]
  - Respiratory failure [None]
  - Inflammatory marker increased [None]

NARRATIVE: CASE EVENT DATE: 20220107
